FAERS Safety Report 23999742 (Version 1)
Quarter: 2024Q2

REPORT INFORMATION
  Report Type: Spontaneous
  Country: US (occurrence: US)
  Receive Date: 20240621
  Receipt Date: 20240621
  Transmission Date: 20240717
  Serious: No
  Sender: FDA-Public Use
  Company Number: US-BAYER-2024A088608

PATIENT
  Sex: Male

DRUGS (2)
  1. CLARITIN [Suspect]
     Active Substance: LORATADINE
     Indication: Rhinorrhoea
     Dosage: 1 DF, QD
     Route: 048
     Dates: start: 20240617, end: 20240618
  2. CLARITIN [Suspect]
     Active Substance: LORATADINE
     Indication: Productive cough

REACTIONS (1)
  - Drug effect less than expected [Not Recovered/Not Resolved]
